FAERS Safety Report 21620442 (Version 1)
Quarter: 2022Q4

REPORT INFORMATION
  Report Type: Spontaneous
  Country: CN (occurrence: CN)
  Receive Date: 20221121
  Receipt Date: 20221121
  Transmission Date: 20230113
  Serious: Yes (Other)
  Sender: FDA-Public Use
  Company Number: CN-Accord-277195

PATIENT
  Age: 50 Year
  Sex: Male

DRUGS (6)
  1. CISPLATIN [Suspect]
     Active Substance: CISPLATIN
     Indication: Nasopharyngeal cancer stage IV
     Dosage: 80 MG/M2 EVERY 3 WEEKS FOR FIVE CYCLES
     Dates: start: 202101, end: 202104
  2. PACLITAXEL [Suspect]
     Active Substance: PACLITAXEL
     Indication: Undifferentiated nasopharyngeal carcinoma
     Dosage: 260 MG/M2 EVERY 3 WEEKS FOR FIVE CYCLES
     Dates: start: 202101, end: 202104
  3. TISLELIZUMAB [Suspect]
     Active Substance: TISLELIZUMAB
     Indication: Nasopharyngeal cancer stage IV
     Dosage: 200 MG EVERY 3 WEEKS FOR FIVE CYCLES
     Dates: start: 202101, end: 202104
  4. CISPLATIN [Suspect]
     Active Substance: CISPLATIN
     Indication: Metastases to liver
     Dates: start: 202101, end: 202104
  5. PACLITAXEL [Suspect]
     Active Substance: PACLITAXEL
     Indication: Metastases to liver
     Dates: start: 202101, end: 202104
  6. TISLELIZUMAB [Suspect]
     Active Substance: TISLELIZUMAB
     Indication: Metastases to liver
     Dates: start: 202101, end: 202104

REACTIONS (2)
  - Myelosuppression [Unknown]
  - Gastrointestinal disorder [Unknown]

NARRATIVE: CASE EVENT DATE: 20210101
